FAERS Safety Report 21288412 (Version 1)
Quarter: 2022Q3

REPORT INFORMATION
  Report Type: Spontaneous
  Country: CN (occurrence: CN)
  Receive Date: 20220902
  Receipt Date: 20220902
  Transmission Date: 20221027
  Serious: Yes (Other)
  Sender: FDA-Public Use
  Company Number: CN-ORGANON-O2208CHN002262

PATIENT
  Age: 36 Year
  Sex: Female
  Weight: 84.2 kg

DRUGS (1)
  1. ORGALUTRAN [Suspect]
     Active Substance: GANIRELIX ACETATE
     Dosage: 0.125MG, QD; STRENGTH: 0.5 MILLILITRE (ML):0.25 MILLIGRAM (MG); INDICATION REPORTED AS ANTAGONIST RE
     Dates: start: 20220815, end: 20220816

REACTIONS (4)
  - Syncope [Recovering/Resolving]
  - Hyperhidrosis [Recovering/Resolving]
  - Asthenia [Recovering/Resolving]
  - Dyspnoea [Recovering/Resolving]

NARRATIVE: CASE EVENT DATE: 20220815
